FAERS Safety Report 4489461-X (Version None)
Quarter: 2004Q4

REPORT INFORMATION
  Report Type: 
  Country: None (occurrence: None)
  Receive Date: 20041026
  Receipt Date: 20041011
  Transmission Date: 20050328
  Serious: Yes (Other)
  Sender: FDA-Public Use
  Company Number: JP_041004747

PATIENT
  Age: 45 Year
  Sex: Female

DRUGS (6)
  1. ONCOVIN [Suspect]
     Indication: AESTHESIONEUROBLASTOMA
     Dosage: 1.2 MG/M2 OTHER
     Route: 050
  2. CYCLOPHOSPHAMIDE [Concomitant]
  3. DOXORUBICIN HCL [Concomitant]
  4. ETOPOSIDE [Concomitant]
  5. CISPLATIN [Concomitant]
  6. RADIOTHERAPY [Concomitant]

REACTIONS (9)
  - BLOOD CHROMIUM INCREASED [None]
  - BLOOD SODIUM DECREASED [None]
  - DIARRHOEA [None]
  - HAEMATOTOXICITY [None]
  - HYPOCALCAEMIA [None]
  - METABOLIC ALKALOSIS [None]
  - PYREXIA [None]
  - STEM CELL TRANSPLANT [None]
  - THERAPEUTIC RESPONSE DECREASED [None]
